FAERS Safety Report 16886852 (Version 5)
Quarter: 2020Q1

REPORT INFORMATION
  Report Type: Spontaneous
  Country: US (occurrence: US)
  Receive Date: 20191004
  Receipt Date: 20200324
  Transmission Date: 20200409
  Serious: Yes (Hospitalization, Other)
  Sender: FDA-Public Use
  Company Number: US-LEXICON PHARMACEUTICALS, INC-19-1606-00899

PATIENT
  Age: 76 Year
  Sex: Male

DRUGS (3)
  1. XERMELO [Suspect]
     Active Substance: TELOTRISTAT ETHYL
     Indication: CARCINOID SYNDROME
     Dosage: 2 TAB (500 MG) THE MORNING, 1 TAB (250 MG) AT NIGHT
     Dates: start: 20180329
  2. LANREOTIDE [Concomitant]
     Active Substance: LANREOTIDE
  3. AMLODIPINE [Concomitant]
     Active Substance: AMLODIPINE BESYLATE

REACTIONS (6)
  - Hospitalisation [Unknown]
  - Knee operation [Unknown]
  - Joint stiffness [Not Recovered/Not Resolved]
  - Renal disorder [Unknown]
  - Arthralgia [Not Recovered/Not Resolved]
  - Off label use [Unknown]
